FAERS Safety Report 19881693 (Version 1)
Quarter: 2021Q3

REPORT INFORMATION
  Report Type: Spontaneous
  Country: US (occurrence: US)
  Receive Date: 20210924
  Receipt Date: 20210924
  Transmission Date: 20211014
  Serious: Yes (Other)
  Sender: FDA-Public Use
  Company Number: US-ASTRAZENECA-2021A733367

PATIENT
  Age: 40 Year
  Sex: Female
  Weight: 95.3 kg

DRUGS (1)
  1. LYNPARZA [Suspect]
     Active Substance: OLAPARIB
     Indication: OVARIAN CANCER
     Route: 048
     Dates: start: 20200329

REACTIONS (6)
  - Hepatic cancer [Unknown]
  - Fatigue [Unknown]
  - Decreased appetite [Unknown]
  - Defaecation urgency [Unknown]
  - Ovarian cancer recurrent [Unknown]
  - Taste disorder [Unknown]
